FAERS Safety Report 16365134 (Version 2)
Quarter: 2019Q2

REPORT INFORMATION
  Report Type: Report from Study
  Country: US (occurrence: US)
  Receive Date: 20190529
  Receipt Date: 20190612
  Transmission Date: 20190711
  Serious: Yes (Other)
  Sender: FDA-Public Use
  Company Number: US-ACCORD-129378

PATIENT
  Age: 57 Year
  Sex: Female

DRUGS (7)
  1. IRINOTECAN [Suspect]
     Active Substance: IRINOTECAN
     Indication: SMALL INTESTINE CARCINOMA METASTATIC
     Dosage: 1 DOSE OF FOLFIRI, 10 MONTHS
  2. OXALIPLATIN. [Suspect]
     Active Substance: OXALIPLATIN
     Indication: SMALL INTESTINE CARCINOMA METASTATIC
     Dosage: 10 MONTHS
  3. PACLITAXEL/PACLITAXEL LIPOSOME [Concomitant]
     Indication: SMALL INTESTINE CARCINOMA METASTATIC
  4. CISPLATIN. [Suspect]
     Active Substance: CISPLATIN
     Indication: SMALL INTESTINE CARCINOMA METASTATIC
     Dosage: 3 WEEKS ON AND 1 WEEK?OFF, FOR 6 MONTHS
     Dates: start: 201707
  5. FOLINIC ACID [Suspect]
     Active Substance: LEUCOVORIN
     Indication: SMALL INTESTINE CARCINOMA METASTATIC
     Dosage: 10 MONTHS
  6. FLUOROURACIL. [Suspect]
     Active Substance: FLUOROURACIL
     Indication: SMALL INTESTINE CARCINOMA METASTATIC
     Dosage: 10 MONTHS
  7. GEMCITABINE [Concomitant]
     Active Substance: GEMCITABINE\GEMCITABINE HYDROCHLORIDE
     Indication: SMALL INTESTINE CARCINOMA METASTATIC

REACTIONS (4)
  - Treatment failure [Unknown]
  - Blood creatinine increased [Unknown]
  - Off label use [Unknown]
  - Pain [Unknown]
